FAERS Safety Report 19383588 (Version 6)
Quarter: 2022Q4

REPORT INFORMATION
  Report Type: Report from Study
  Country: AT (occurrence: AT)
  Receive Date: 20210607
  Receipt Date: 20221011
  Transmission Date: 20230113
  Serious: Yes (Hospitalization)
  Sender: FDA-Public Use
  Company Number: AT-ROCHE-2828128

PATIENT
  Age: 47 Year
  Sex: Female
  Weight: 58 kg

DRUGS (50)
  1. TRASTUZUMAB [Suspect]
     Active Substance: TRASTUZUMAB
     Indication: HER2 positive breast cancer
     Dosage: 6 MG/KG, EVERY 3 WEEKS
     Route: 042
     Dates: start: 20190724, end: 20190912
  2. PACLITAXEL [Suspect]
     Active Substance: PACLITAXEL
     Indication: HER2 positive breast cancer
     Dosage: 260 MG/M2, EVERY 3 WEEKS
     Route: 042
     Dates: start: 20190724, end: 20190912
  3. PERTUZUMAB [Suspect]
     Active Substance: PERTUZUMAB
     Indication: HER2 positive breast cancer
     Dosage: 420 MG, EVERY 3 WEEKS
     Route: 042
     Dates: start: 20190724, end: 20190912
  4. ADO-TRASTUZUMAB EMTANSINE [Suspect]
     Active Substance: ADO-TRASTUZUMAB EMTANSINE
     Indication: HER2 positive breast cancer
     Dosage: 3.6 MG/KG, EVERY 3 WEEKS (MOST RECENT DOSE PRIOR TO THE EVENT: 03JUL2020)
     Route: 042
     Dates: start: 20191014, end: 20200518
  5. ADO-TRASTUZUMAB EMTANSINE [Suspect]
     Active Substance: ADO-TRASTUZUMAB EMTANSINE
     Dosage: 3.6 MG, EVERY 3 WEEKS
     Route: 042
     Dates: start: 20200703, end: 20200703
  6. ADO-TRASTUZUMAB EMTANSINE [Suspect]
     Active Substance: ADO-TRASTUZUMAB EMTANSINE
     Dosage: 2.88 MG, EVERY 3 WEEKS
     Route: 042
     Dates: start: 20200703, end: 20200703
  7. CAPECITABINE [Suspect]
     Active Substance: CAPECITABINE
     Indication: HER2 positive breast cancer
     Dosage: 500 MG (FREQUENCY: OTHER SIX TIMES A DAY FOR 14 DAYS, 7 DAYS BREAK)
     Route: 048
     Dates: start: 20200923, end: 20201220
  8. CAPECITABINE [Suspect]
     Active Substance: CAPECITABINE
     Dosage: 500 MG
     Route: 048
     Dates: start: 20210109, end: 20210109
  9. CAPECITABINE [Suspect]
     Active Substance: CAPECITABINE
     Dosage: 500 MG, 4X/DAY
     Route: 048
     Dates: start: 20210109, end: 20211209
  10. LAPATINIB [Suspect]
     Active Substance: LAPATINIB
     Indication: HER2 positive breast cancer
     Dosage: 250 MG
     Route: 048
     Dates: start: 20200923, end: 20201228
  11. LAPATINIB [Suspect]
     Active Substance: LAPATINIB
     Dosage: 250 MG
     Route: 048
     Dates: start: 20210109, end: 20210109
  12. LAPATINIB [Suspect]
     Active Substance: LAPATINIB
     Dosage: 250 MG (FREQUENCY: OTHER MOST RECENT DOSE PRIOR TO THE EVENT: 09JAN2021)
     Route: 048
     Dates: start: 20200923, end: 20211228
  13. LAPATINIB [Suspect]
     Active Substance: LAPATINIB
     Dosage: 250 MG, 4X/DAY
     Route: 048
     Dates: start: 20210109, end: 20211216
  14. FAM-TRASTUZUMAB DERUXTECAN-NXKI [Suspect]
     Active Substance: FAM-TRASTUZUMAB DERUXTECAN-NXKI
     Indication: HER2 positive breast cancer
     Dosage: 4.4 MG/KG, EVERY 3 WEEKS
     Route: 042
     Dates: start: 20220419
  15. FAM-TRASTUZUMAB DERUXTECAN-NXKI [Suspect]
     Active Substance: FAM-TRASTUZUMAB DERUXTECAN-NXKI
     Dosage: 5.4 MG/KG, EVERY 3 WEEKS
     Route: 042
     Dates: start: 20220110, end: 20220131
  16. FAM-TRASTUZUMAB DERUXTECAN-NXKI [Suspect]
     Active Substance: FAM-TRASTUZUMAB DERUXTECAN-NXKI
     Dosage: 3.2 MG/KG, EVERY 3 WEEKS
     Route: 042
     Dates: start: 20220324, end: 20220324
  17. ALPRAZOLAM [Concomitant]
     Active Substance: ALPRAZOLAM
     Dosage: UNK (ONGOING = CHECKED)
     Dates: start: 20190715
  18. CALCIDURAN [ASCORBIC ACID;CALCIUM PHOSPHATE;CITRIC ACID;COLECALCIFEROL [Concomitant]
     Dosage: UNK (ONGOING = CHECKED)
     Dates: start: 20190717
  19. CEOLAT [Concomitant]
     Dosage: UNK (ONGOING = CHECKED)
     Dates: start: 20190815
  20. CITALOPRAM [Concomitant]
     Active Substance: CITALOPRAM HYDROBROMIDE
     Dosage: UNK (ONGOING = CHECKED)
     Dates: start: 20190715
  21. DRONABINOL [Concomitant]
     Active Substance: DRONABINOL
     Dosage: UNK (ONGOING = CHECKED)
     Dates: start: 20190716
  22. DRONABINOL [Concomitant]
     Active Substance: DRONABINOL
     Dosage: UNK (ONGOING = CHECKED)
     Dates: start: 20210705
  23. LOPERAMIDE HYDROCHLORIDE [Concomitant]
     Active Substance: LOPERAMIDE HYDROCHLORIDE
     Indication: Diarrhoea
     Dosage: UNK (ONGOING = CHECKED)
     Dates: start: 20210215
  24. EUTHYROX [Concomitant]
     Active Substance: LEVOTHYROXINE SODIUM
     Dosage: 50 UG, DAILY
     Dates: start: 20190703, end: 20200929
  25. EUTHYROX [Concomitant]
     Active Substance: LEVOTHYROXINE SODIUM
     Dosage: 75 UG, 1X/DAY
     Dates: end: 2019
  26. POLYETHYLENE GLYCOL 4000 [Concomitant]
     Active Substance: POLYETHYLENE GLYCOL 4000
     Dosage: UNK (ONGOING = CHECKED)
     Dates: start: 20190705
  27. DEXAMETHASONE [Concomitant]
     Active Substance: DEXAMETHASONE
     Indication: Intracranial pressure increased
     Dosage: UNK
     Dates: start: 20190704, end: 20190912
  28. DEXAMETHASONE [Concomitant]
     Active Substance: DEXAMETHASONE
     Dosage: UNK
     Dates: start: 20190705, end: 20190914
  29. DEXAMETHASONE [Concomitant]
     Active Substance: DEXAMETHASONE
     Dosage: UNK
     Dates: start: 20211229
  30. DEXAMETHASONE [Concomitant]
     Active Substance: DEXAMETHASONE
     Dosage: UNK
     Dates: start: 20220110
  31. DEXAMETHASONE [Concomitant]
     Active Substance: DEXAMETHASONE
     Dosage: UNK
     Dates: start: 20220111, end: 20220112
  32. DEXAMETHASONE [Concomitant]
     Active Substance: DEXAMETHASONE
     Dosage: UNK
     Dates: start: 20220113, end: 20220114
  33. DEXAMETHASONE [Concomitant]
     Active Substance: DEXAMETHASONE
     Dosage: UNK
     Dates: start: 20220115
  34. DEXAMETHASONE [Concomitant]
     Active Substance: DEXAMETHASONE
     Dosage: 8 MG
     Dates: start: 20220622
  35. HYDROMORPHONE HYDROCHLORIDE [Concomitant]
     Active Substance: HYDROMORPHONE HYDROCHLORIDE
     Dosage: UNK
     Dates: start: 20190716
  36. HYDROMORPHONE HYDROCHLORIDE [Concomitant]
     Active Substance: HYDROMORPHONE HYDROCHLORIDE
     Dosage: UNK (ONGOING = CHECKED)
     Dates: start: 20220207
  37. ACETAMINOPHEN [Concomitant]
     Active Substance: ACETAMINOPHEN
     Dosage: UNK
     Dates: start: 20190701
  38. OLANZAPINE [Concomitant]
     Active Substance: OLANZAPINE
     Dosage: UNK
     Dates: start: 20190904
  39. PANTOPRAZOLE SODIUM [Concomitant]
     Active Substance: PANTOPRAZOLE SODIUM
     Dosage: UNK (ONGOING = NOT CHECKED)
     Dates: start: 20190701
  40. SUCRALAN [Concomitant]
     Dosage: 1 G (ONGOING = CHECKED)
     Dates: start: 20190701
  41. TRAZODONE HYDROCHLORIDE [Concomitant]
     Active Substance: TRAZODONE HYDROCHLORIDE
     Dosage: 150 MG
     Dates: start: 20190716, end: 20200926
  42. ZOFRAN [Concomitant]
     Active Substance: ONDANSETRON HYDROCHLORIDE
     Dosage: UNK
     Dates: start: 20190701
  43. ZOFRAN [Concomitant]
     Active Substance: ONDANSETRON HYDROCHLORIDE
     Dosage: UNK
     Dates: start: 20190704
  44. ZOFRAN [Concomitant]
     Active Substance: ONDANSETRON HYDROCHLORIDE
     Dosage: UNK (ONGOING = CHECKED)
     Dates: start: 20220110
  45. URSODIOL [Concomitant]
     Active Substance: URSODIOL
  46. UNASYN [AMPICILLIN SODIUM;SULBACTAM SODIUM] [Concomitant]
  47. ORNITHINE ASPARTATE [Concomitant]
     Active Substance: ORNITHINE ASPARTATE
  48. EMEND [Concomitant]
     Active Substance: APREPITANT
     Dosage: 125 MG
     Dates: start: 20220621
  49. EMEND [Concomitant]
     Active Substance: APREPITANT
     Dosage: 80 MG
     Dates: start: 20220621
  50. NEULASTA [Concomitant]
     Active Substance: PEGFILGRASTIM

REACTIONS (1)
  - COVID-19 [Recovered/Resolved]

NARRATIVE: CASE EVENT DATE: 20210222
